FAERS Safety Report 8760694 (Version 1)
Quarter: 2012Q4

REPORT INFORMATION
  Report Type: 
  Country: US (occurrence: US)
  Receive Date: 20120830
  Receipt Date: 20120830
  Transmission Date: 20130627
  Serious: Yes (Hospitalization)
  Sender: FDA-Public Use
  Company Number: US-JNJFOC-20120811587

PATIENT
  Sex: Female

DRUGS (11)
  1. XARELTO [Suspect]
     Indication: CEREBROVASCULAR ACCIDENT PROPHYLAXIS
     Route: 048
  2. XARELTO [Suspect]
     Indication: ATRIAL FIBRILLATION
     Route: 048
  3. SYNTHROID [Concomitant]
  4. DIGOXIN [Concomitant]
  5. LIPITOR [Concomitant]
  6. AMBIEN [Concomitant]
  7. SYSTANE [Concomitant]
  8. LOTEMAX [Concomitant]
  9. QUINAPRIL [Concomitant]
  10. VITAMIN D [Concomitant]
  11. HYDROXYCHLOROQUINE [Concomitant]

REACTIONS (1)
  - Cerebrovascular accident [Unknown]
